FAERS Safety Report 7424519-4 (Version None)
Quarter: 2011Q2

REPORT INFORMATION
  Report Type: 
  Country: None (occurrence: None)
  Receive Date: 20110419
  Receipt Date: 20110406
  Transmission Date: 20111010
  Serious: Yes (Hospitalization, Other)
  Sender: FDA-Public Use
  Company Number: DK-JNJFOC-20090500113

PATIENT
  Sex: Female
  Weight: 78 kg

DRUGS (6)
  1. PAMOL [Concomitant]
  2. LOCOID LIPOCREAM [Concomitant]
  3. REMICADE [Suspect]
     Route: 042
  4. PULMICORT [Concomitant]
     Indication: ASTHMA
  5. REMICADE [Suspect]
     Indication: PSORIATIC ARTHROPATHY
     Route: 042
  6. METHOTREXATE [Concomitant]

REACTIONS (2)
  - MEDIASTINAL MASS [None]
  - TUBERCULOSIS [None]
